FAERS Safety Report 18619065 (Version 1)
Quarter: 2020Q4

REPORT INFORMATION
  Report Type: Spontaneous
  Country: AE (occurrence: AE)
  Receive Date: 20201215
  Receipt Date: 20201215
  Transmission Date: 20210114
  Serious: Yes (Other)
  Sender: FDA-Public Use
  Company Number: NVSC2020AE328368

PATIENT
  Age: 38 Year
  Sex: Male

DRUGS (1)
  1. FEMARA [Suspect]
     Active Substance: LETROZOLE
     Indication: BREAST CANCER
     Dosage: UNK
     Route: 048
     Dates: start: 201804

REACTIONS (3)
  - Platelet count increased [Unknown]
  - Off label use [Unknown]
  - White blood cell count increased [Unknown]
